FAERS Safety Report 6396564-1 (Version None)
Quarter: 2009Q4

REPORT INFORMATION
  Report Type: 
  Country: None (occurrence: None)
  Receive Date: 20091012
  Receipt Date: 20090915
  Transmission Date: 20100525
  Serious: Yes (Other)
  Sender: FDA-Public Use
  Company Number: US-ASTRAZENECA-2009SE13389

PATIENT
  Age: 38 Year
  Sex: Female
  Weight: 97 kg

DRUGS (3)
  1. ROPIVACAINE [Suspect]
     Indication: NERVE BLOCK
     Dosage: 1:200.000
  2. ROPIVACAINE [Suspect]
     Dosage: 1:200.000
  3. EPINEPHRINE [Suspect]

REACTIONS (1)
  - PHRENIC NERVE PARALYSIS [None]
